FAERS Safety Report 7381011-3 (Version None)
Quarter: 2011Q1

REPORT INFORMATION
  Report Type: 
  Country: None (occurrence: None)
  Receive Date: 20110329
  Receipt Date: 20110319
  Transmission Date: 20110831
  Serious: Yes (Death, Other)
  Sender: FDA-Public Use
  Company Number: IT-BAXTER-2011BH007649

PATIENT
  Age: 57 Year
  Sex: Male

DRUGS (4)
  1. ZEVALIN [Suspect]
     Indication: B-CELL LYMPHOMA
     Route: 042
  2. RITUXIMAB [Suspect]
     Indication: B-CELL LYMPHOMA
     Route: 042
  3. CYCLOPHOSPHAMIDE [Suspect]
     Indication: B-CELL LYMPHOMA
     Route: 042
  4. FLUDARABINE [Suspect]
     Indication: B-CELL LYMPHOMA
     Route: 042

REACTIONS (3)
  - NEUTROPENIA [None]
  - MYELODYSPLASTIC SYNDROME [None]
  - SEPSIS [None]
